FAERS Safety Report 9652497 (Version 2)
Quarter: 2013Q4

REPORT INFORMATION
  Report Type: Spontaneous
  Country: FR (occurrence: FR)
  Receive Date: 20131029
  Receipt Date: 20131031
  Transmission Date: 20140711
  Serious: Yes (Hospitalization)
  Sender: FDA-Public Use
  Company Number: FR-PFIZER INC-2013305514

PATIENT
  Age: 86 Year
  Sex: Female

DRUGS (12)
  1. TAZOCILLINE [Suspect]
     Dosage: UNK
     Dates: start: 20130927, end: 20131020
  2. ZYVOXID [Interacting]
     Dosage: UNK
     Dates: start: 20130919, end: 20131003
  3. XARELTO [Interacting]
     Dosage: UNK
     Route: 048
     Dates: end: 20131002
  4. PYOSTACINE [Interacting]
     Indication: ERYSIPELAS
     Dosage: UNK
     Dates: start: 20130920, end: 20130930
  5. PERINDOPRIL [Concomitant]
     Dosage: UNK
  6. SIMVASTATIN [Concomitant]
     Dosage: UNK
  7. AMIODARONE [Concomitant]
     Dosage: UNK
  8. REPAGLINIDE [Concomitant]
     Dosage: UNK
  9. LEVOTHYROX [Concomitant]
  10. ESOMEPRAZOLE [Concomitant]
  11. PARACETAMOL [Concomitant]
  12. EXELON [Concomitant]

REACTIONS (2)
  - Overdose [Recovered/Resolved]
  - Drug interaction [Recovered/Resolved]
